FAERS Safety Report 20315182 (Version 1)
Quarter: 2022Q1

REPORT INFORMATION
  Report Type: Spontaneous
  Country: CN (occurrence: CN)
  Receive Date: 20220110
  Receipt Date: 20220110
  Transmission Date: 20220423
  Serious: Yes (Hospitalization)
  Sender: FDA-Public Use
  Company Number: CN-PFIZER INC-202101878469

PATIENT
  Age: 57 Year
  Sex: Female
  Weight: 55 kg

DRUGS (4)
  1. SOLU-MEDROL [Suspect]
     Active Substance: METHYLPREDNISOLONE SODIUM SUCCINATE
     Indication: Sudden hearing loss
     Dosage: 120 MG, 1X/DAY
     Route: 041
     Dates: start: 20211214, end: 20211216
  2. GINKGO [Suspect]
     Active Substance: GINKGO
     Indication: Sudden hearing loss
     Dosage: 87.500 MG, 1X/DAY
     Route: 041
     Dates: start: 20211214, end: 20211216
  3. SODIUM CHLORIDE [Concomitant]
     Active Substance: SODIUM CHLORIDE
     Indication: Vehicle solution use
     Dosage: 100.000 ML, 1X/DAY
     Route: 041
     Dates: start: 20211214, end: 20211216
  4. SODIUM CHLORIDE [Concomitant]
     Active Substance: SODIUM CHLORIDE
     Dosage: 100.000 ML, 1X/DAY
     Route: 041
     Dates: start: 20211214, end: 20211216

REACTIONS (8)
  - Hypoaesthesia [Recovering/Resolving]
  - Nausea [Recovering/Resolving]
  - Vomiting [Recovering/Resolving]
  - Chest discomfort [Recovering/Resolving]
  - Joint range of motion decreased [Recovering/Resolving]
  - Drug hypersensitivity [Recovering/Resolving]
  - Infusion related reaction [Recovering/Resolving]
  - Product use in unapproved indication [Unknown]

NARRATIVE: CASE EVENT DATE: 20211214
